FAERS Safety Report 12324171 (Version 1)
Quarter: 2016Q2

REPORT INFORMATION
  Report Type: Report from Study
  Country: US (occurrence: US)
  Receive Date: 20160502
  Receipt Date: 20160502
  Transmission Date: 20160815
  Serious: No
  Sender: FDA-Public Use
  Company Number: US-ABBVIE-15P-163-1445852-00

PATIENT
  Age: 49 Year
  Sex: Male
  Weight: 65.83 kg

DRUGS (2)
  1. ANDROGEL [Suspect]
     Active Substance: TESTOSTERONE
     Indication: BLOOD TESTOSTERONE DECREASED
     Dosage: TWO PUMPS
     Route: 061
     Dates: start: 201502, end: 201506
  2. ANDROGEL [Suspect]
     Active Substance: TESTOSTERONE
     Dosage: FOUR PUMPS
     Route: 061
     Dates: start: 201506

REACTIONS (1)
  - Drug effect incomplete [Not Recovered/Not Resolved]

NARRATIVE: CASE EVENT DATE: 201507
